FAERS Safety Report 6019433-5 (Version None)
Quarter: 2008Q4

REPORT INFORMATION
  Report Type: 
  Country: None (occurrence: None)
  Receive Date: 20081224
  Receipt Date: 20081218
  Transmission Date: 20090506
  Serious: Yes (Other)
  Sender: FDA-Public Use
  Company Number: US-ALLERGAN-0812671US

PATIENT
  Sex: Female
  Weight: 70.295 kg

DRUGS (9)
  1. BOTOX [Suspect]
     Indication: BLEPHAROSPASM
     Dosage: 50 UNITS, SINGLE
     Route: 030
     Dates: start: 20080925, end: 20080925
  2. ALLEGRA D 24 HOUR [Concomitant]
  3. ADVAIR DISKUS 250/50 [Concomitant]
     Indication: CHRONIC OBSTRUCTIVE PULMONARY DISEASE
     Dosage: 500, 1 PUFF BID
     Route: 055
  4. SPIRIVA [Concomitant]
     Indication: ASTHMA
     Dosage: UNK, QD
     Route: 055
  5. SPIRIVA [Concomitant]
     Indication: CHRONIC OBSTRUCTIVE PULMONARY DISEASE
  6. LEXAPRO [Concomitant]
     Indication: AFFECTIVE DISORDER
     Dosage: 10 MG, QD
  7. LEXAPRO [Concomitant]
     Dosage: 10 MG, QD
     Route: 048
  8. COMBIVENT [Concomitant]
     Indication: CHRONIC OBSTRUCTIVE PULMONARY DISEASE
     Dosage: UNK, PRN
     Route: 055
  9. TRAZODONE [Concomitant]
     Indication: SLEEP DISORDER
     Dosage: 50 MG, PRN
     Route: 048

REACTIONS (9)
  - ASTHENIA [None]
  - DEPRESSION [None]
  - DIPLOPIA [None]
  - DIZZINESS [None]
  - DRUG INTOLERANCE [None]
  - EYELID PTOSIS [None]
  - MUSCULAR WEAKNESS [None]
  - OCULAR HYPERAEMIA [None]
  - VISION BLURRED [None]
